FAERS Safety Report 13101227 (Version 2)
Quarter: 2017Q1

REPORT INFORMATION
  Report Type: Spontaneous
  Country: BR (occurrence: BR)
  Receive Date: 20170110
  Receipt Date: 20170111
  Transmission Date: 20170428
  Serious: Yes (Other)
  Sender: FDA-Public Use
  Company Number: BR-JNJFOC-20160111646

PATIENT
  Age: 29 Year
  Sex: Male
  Weight: 102 kg

DRUGS (1)
  1. STELARA [Suspect]
     Active Substance: USTEKINUMAB
     Indication: PSORIASIS
     Route: 058
     Dates: start: 20150630

REACTIONS (4)
  - Haemorrhage [Unknown]
  - Arthralgia [Unknown]
  - Psoriasis [Unknown]
  - Drug dose omission [Unknown]

NARRATIVE: CASE EVENT DATE: 20160119
